FAERS Safety Report 4322729-6 (Version None)
Quarter: 2004Q1

REPORT INFORMATION
  Report Type: 
  Country: None (occurrence: None)
  Receive Date: 20040324
  Receipt Date: 20040218
  Transmission Date: 20041129
  Serious: Yes (Hospitalization, Other)
  Sender: FDA-Public Use
  Company Number: US-GLAXOSMITHKLINE-A0498759A

PATIENT
  Age: 63 Year
  Sex: Male
  Weight: 60 kg

DRUGS (11)
  1. HYCAMTIN [Suspect]
     Indication: SMALL CELL LUNG CANCER STAGE UNSPECIFIED
     Dosage: 40MG SINGLE DOSE
     Route: 042
  2. EPO [Concomitant]
     Indication: ANAEMIA
     Dosage: 40000UNIT PER DAY
     Route: 058
     Dates: start: 20040101
  3. IRON [Concomitant]
     Indication: ANAEMIA
     Dosage: 325MG PER DAY
     Route: 048
  4. FOLIC ACID [Concomitant]
     Indication: ANAEMIA
     Dosage: 1MG PER DAY
     Route: 048
     Dates: start: 20040101
  5. FLUOXETINE [Concomitant]
     Indication: DEPRESSION
     Dosage: 10MG PER DAY
     Route: 048
     Dates: start: 20030701
  6. VICODIN [Concomitant]
     Indication: PAIN
     Dosage: 5MG AS REQUIRED
     Route: 048
     Dates: start: 20030901
  7. HYDROXYZINE [Concomitant]
     Indication: PRURITUS
     Dosage: 25MG AS REQUIRED
     Route: 048
     Dates: start: 20040201
  8. SYNTHROID [Concomitant]
     Indication: HYPOTHYROIDISM
     Dosage: .025MG PER DAY
     Route: 048
     Dates: start: 20031201
  9. RANITIDINE [Concomitant]
     Dosage: 150MG TWICE PER DAY
     Route: 048
     Dates: start: 20031001
  10. COMBIVENT [Concomitant]
     Indication: DYSPNOEA
     Dosage: 1PUFF AS REQUIRED
     Route: 055
  11. MEGESTROL [Concomitant]
     Indication: APPETITE DISORDER
     Dosage: 800MG PER DAY
     Route: 048
     Dates: start: 20030701

REACTIONS (15)
  - ABDOMINAL PAIN [None]
  - ASTHENIA [None]
  - BLOOD CULTURE POSITIVE [None]
  - ELECTROLYTE IMBALANCE [None]
  - HYPONATRAEMIA [None]
  - HYPOTENSION [None]
  - LEUKOPLAKIA ORAL [None]
  - MEDICATION ERROR [None]
  - MUCOSAL INFLAMMATION [None]
  - NAUSEA [None]
  - OVERDOSE [None]
  - PANCYTOPENIA [None]
  - RASH [None]
  - TACHYCARDIA [None]
  - VOMITING [None]
